FAERS Safety Report 10163524 (Version 1)
Quarter: 2014Q2

REPORT INFORMATION
  Report Type: Spontaneous
  Country: US (occurrence: US)
  Receive Date: 20140509
  Receipt Date: 20140509
  Transmission Date: 20141212
  Serious: Yes (Other)
  Sender: FDA-Public Use
  Company Number: US-BRISTOL-MYERS SQUIBB COMPANY-20692331

PATIENT
  Age: 73 Year
  Sex: Female
  Weight: 48.07 kg

DRUGS (1)
  1. ABATACEPT SUBQ INJECTION 125MG/ML [Suspect]
     Dosage: 125MG/ML LAST DOSE ADMINISTRATION :25APR2014
     Route: 058
     Dates: start: 2013, end: 20140425

REACTIONS (5)
  - Cataract [Unknown]
  - Dry eye [Unknown]
  - Abdominal distension [Unknown]
  - Weight increased [Unknown]
  - Product quality issue [Unknown]
